FAERS Safety Report 9135749 (Version 1)
Quarter: 2013Q1

REPORT INFORMATION
  Report Type: Spontaneous
  Country: IN (occurrence: None)
  Receive Date: 20130212
  Receipt Date: 20130212
  Transmission Date: 20140127
  Serious: Yes (Death, Other)
  Sender: FDA-Public Use
  Company Number: 2012P1001819

PATIENT
  Age: 31 Year
  Sex: Male

DRUGS (2)
  1. RIFAMPIN [Suspect]
     Dosage: 6075 GMS
  2. ISONIAZID [Suspect]

REACTIONS (11)
  - Shock [None]
  - Respiratory distress [None]
  - Vomiting [None]
  - Grand mal convulsion [None]
  - Coma [None]
  - Metabolic acidosis [None]
  - Lactic acidosis [None]
  - Rhabdomyolysis [None]
  - Liver disorder [None]
  - Renal impairment [None]
  - Blood glucose increased [None]
